FAERS Safety Report 17467519 (Version 1)
Quarter: 2020Q1

REPORT INFORMATION
  Report Type: Spontaneous
  Country: US (occurrence: US)
  Receive Date: 20200226
  Receipt Date: 20200226
  Transmission Date: 20200409
  Serious: Yes (Hospitalization)
  Sender: FDA-Public Use
  Company Number: None

PATIENT
  Age: 48 Year
  Sex: Female

DRUGS (10)
  1. IRBESARTAN TAB 300 MG [Concomitant]
  2. ACYCLOVIR OIN 5 % [Concomitant]
  3. ALBUTEROL NEB 0.083% [Concomitant]
  4. AMOX/K CLAV TAB 875-125 [Concomitant]
  5. GLATIRAMER [Suspect]
     Active Substance: GLATIRAMER
     Indication: MULTIPLE SCLEROSIS
     Dosage: ?          OTHER FREQUENCY:3 TIMES WEEKLY;?
     Route: 058
     Dates: start: 20191010
  6. IPRATROPIUM SOL 0.02% INH [Concomitant]
  7. BROM/PSE/DM SYP [Concomitant]
     Active Substance: BROMPHENIRAMINE MALEATE\DEXTROMETHORPHAN HYDROBROMIDE\PSEUDOEPHEDRINE HYDROCHLORIDE
  8. METFORMIN TAB 500 MG [Concomitant]
  9. VENTOLIN HFA AER [Concomitant]
  10. PREDNISONE TAB 10 MG [Concomitant]

REACTIONS (7)
  - Viral infection [None]
  - Gait disturbance [None]
  - Cardiac disorder [None]
  - Product dose omission [None]
  - Hypertension [None]
  - H1N1 influenza [None]
  - Balance disorder [None]
